FAERS Safety Report 8985258 (Version 1)
Quarter: 2012Q4

REPORT INFORMATION
  Report Type: 
  Country: JP (occurrence: JP)
  Receive Date: 20121226
  Receipt Date: 20121226
  Transmission Date: 20130627
  Serious: Yes (Hospitalization)
  Sender: FDA-Public Use
  Company Number: JP-PFIZER INC-2012324902

PATIENT
  Age: 40 Year
  Sex: Male

DRUGS (3)
  1. CISPLATIN [Suspect]
     Indication: TESTICULAR CANCER METASTATIC
     Dosage: UNK
  2. ETOPOSIDE [Suspect]
     Indication: TESTICULAR CANCER METASTATIC
     Dosage: UNK
  3. BLEOMYCIN [Suspect]
     Indication: TESTICULAR CANCER METASTATIC
     Dosage: UNK

REACTIONS (1)
  - Pulmonary haemorrhage [Recovered/Resolved]
